FAERS Safety Report 15630766 (Version 5)
Quarter: 2020Q2

REPORT INFORMATION
  Report Type: Report from Study
  Country: CN (occurrence: CN)
  Receive Date: 20181119
  Receipt Date: 20200520
  Transmission Date: 20200713
  Serious: Yes (Hospitalization)
  Sender: FDA-Public Use
  Company Number: CN-ROCHE-2213822

PATIENT
  Age: 65 Year
  Sex: Female
  Weight: 50 kg

DRUGS (12)
  1. TRASTUZUMAB EMTANSINE [Suspect]
     Active Substance: ADO-TRASTUZUMAB EMTANSINE
     Indication: HER2 POSITIVE BREAST CANCER
     Dosage: DATE OF MOST RECENT DOSE 198 MG OF TRASTUZUMAB EMTANSINE PRIOR TO AE ONSET WAS 31/OCT/2018
     Route: 042
     Dates: start: 20180130
  2. OMEPRAZOLE. [Concomitant]
     Active Substance: OMEPRAZOLE
     Dosage: NEXT DOSE: 31/OCT/2018 TO 01/NOV/2018
     Route: 065
     Dates: start: 20181010, end: 20181011
  3. LEVOCARNITINE. [Concomitant]
     Active Substance: LEVOCARNITINE
     Route: 065
     Dates: start: 20181031, end: 20181101
  4. GLUTATHIONE REDUCED [Concomitant]
     Route: 065
     Dates: start: 20181031, end: 20181101
  5. DIPHENHYDRAMINE. [Concomitant]
     Active Substance: DIPHENHYDRAMINE
     Route: 065
     Dates: start: 20181031, end: 20181031
  6. OMEPRAZOLE. [Concomitant]
     Active Substance: OMEPRAZOLE
     Route: 065
     Dates: start: 20181031, end: 20181101
  7. LEVOCARNITINE. [Concomitant]
     Active Substance: LEVOCARNITINE
     Dosage: DOSE: 31/OCT/2018 TO 01/NOV/2018
     Route: 065
     Dates: start: 20181010, end: 20181011
  8. INSULIN [Concomitant]
     Active Substance: INSULIN NOS
     Indication: HYPOGLYCAEMIA
     Route: 065
     Dates: start: 20181108, end: 20181110
  9. DIPHENHYDRAMINE. [Concomitant]
     Active Substance: DIPHENHYDRAMINE
     Dosage: NEXT DOSE: 31/OCT/2018 TO 31/OCT/2018
     Route: 065
     Dates: start: 20181010, end: 20181010
  10. CEFEPIME [Concomitant]
     Active Substance: CEFEPIME HYDROCHLORIDE
     Route: 065
     Dates: start: 20181108, end: 20181112
  11. PROPRANOLOL HYDROCHLORIDE. [Concomitant]
     Active Substance: PROPRANOLOL HYDROCHLORIDE
     Route: 065
     Dates: start: 20181108, end: 20181108
  12. GLUTATHIONE REDUCED [Concomitant]
     Dosage: NEXT DOSE: 31/OCT/2018 TO 01/NOV/2018
     Route: 065
     Dates: start: 20181010, end: 20181011

REACTIONS (1)
  - Depressed level of consciousness [Recovered/Resolved]

NARRATIVE: CASE EVENT DATE: 20181108
